FAERS Safety Report 7689178-4 (Version None)
Quarter: 2011Q3

REPORT INFORMATION
  Report Type: 
  Country: None (occurrence: None)
  Receive Date: 20110817
  Receipt Date: 20110804
  Transmission Date: 20111222
  Serious: Yes (Life-Threatening, Hospitalization)
  Sender: FDA-Public Use
  Company Number: AU-CELGENEUS-008-50794-11070113

PATIENT
  Sex: Female
  Weight: 61 kg

DRUGS (7)
  1. VIDAZA [Suspect]
     Indication: ACUTE MYELOID LEUKAEMIA
     Dosage: 75 MILLIGRAM/SQ. METER
     Route: 065
     Dates: start: 20110418, end: 20110622
  2. ELTROMBOPAG [Suspect]
     Indication: ACUTE MYELOID LEUKAEMIA
     Dosage: 200 MILLIGRAM
     Route: 065
     Dates: start: 20110404, end: 20110719
  3. NEXIUM [Concomitant]
     Dosage: 40 MILLIGRAM
     Route: 065
  4. MAXALON [Concomitant]
     Route: 065
     Dates: start: 20110708
  5. PERINDOPRIL ERBUMINE [Concomitant]
     Dosage: 2.5 MILLIGRAM
     Route: 065
  6. POSACONAZOLE [Concomitant]
     Indication: ANTIFUNGAL PROPHYLAXIS
     Dosage: 600 MILLIGRAM
     Route: 065
     Dates: start: 20110626, end: 20110725
  7. OSTELIN [Concomitant]
     Indication: VITAMIN SUPPLEMENTATION
     Dosage: 1000 IU (INTERNATIONAL UNIT)
     Route: 065

REACTIONS (1)
  - FEBRILE NEUTROPENIA [None]
